FAERS Safety Report 6169115-4 (Version None)
Quarter: 2009Q2

REPORT INFORMATION
  Report Type: 
  Country: None (occurrence: None)
  Receive Date: 20090424
  Receipt Date: 20081125
  Transmission Date: 20091009
  Serious: No
  Sender: FDA-Public Use
  Company Number: ALL1-2008-03416

PATIENT
  Age: 60 Year
  Sex: Female
  Weight: 53.5 kg

DRUGS (2)
  1. VYVANSE [Suspect]
     Indication: ATTENTION DEFICIT/HYPERACTIVITY DISORDER
     Dosage: 30 MG, 1X/DAY:QD, ORAL
     Route: 048
     Dates: start: 20081027
  2. LAMICTAL [Concomitant]

REACTIONS (6)
  - DRUG EFFECT INCREASED [None]
  - INITIAL INSOMNIA [None]
  - PALPITATIONS [None]
  - STOMATITIS [None]
  - TONGUE ULCERATION [None]
  - VULVOVAGINAL MYCOTIC INFECTION [None]
